FAERS Safety Report 10923845 (Version 1)
Quarter: 2015Q1

REPORT INFORMATION
  Report Type: Spontaneous
  Country: US (occurrence: None)
  Receive Date: 20150316
  Receipt Date: 20150316
  Transmission Date: 20150721
  Serious: Yes (Death, Hospitalization)
  Sender: FDA-Public Use
  Company Number: None

PATIENT
  Age: 61 Year
  Sex: Male
  Weight: 81.65 kg

DRUGS (1)
  1. AMBIEN [Suspect]
     Active Substance: ZOLPIDEM TARTRATE
     Indication: INSOMNIA
     Dosage: 1 TABLET
     Route: 048
     Dates: start: 20141031, end: 20141120

REACTIONS (5)
  - Incoherent [None]
  - Delusion [None]
  - Depression [None]
  - Completed suicide [None]
  - Confusional state [None]

NARRATIVE: CASE EVENT DATE: 20141121
